FAERS Safety Report 20649572 (Version 1)
Quarter: 2022Q1

REPORT INFORMATION
  Report Type: Other
  Country: DE (occurrence: DE)
  Receive Date: 20220329
  Receipt Date: 20220329
  Transmission Date: 20220423
  Serious: Yes (Death)
  Sender: FDA-Public Use
  Company Number: DE-AMGEN-DEUSP2022039373

PATIENT
  Age: 52 Year
  Sex: Male

DRUGS (2)
  1. CAPECITABINE [Suspect]
     Active Substance: CAPECITABINE
     Indication: Carcinoid tumour pulmonary
     Route: 065
     Dates: start: 201805
  2. BEVACIZUMAB [Suspect]
     Active Substance: BEVACIZUMAB
     Indication: Carcinoid tumour pulmonary
     Route: 065
     Dates: start: 201805

REACTIONS (3)
  - Carcinoid tumour pulmonary [Fatal]
  - Death [Fatal]
  - Drug resistance [Fatal]
